FAERS Safety Report 25654666 (Version 1)
Quarter: 2025Q3

REPORT INFORMATION
  Report Type: Spontaneous
  Country: UA (occurrence: UA)
  Receive Date: 20250807
  Receipt Date: 20250807
  Transmission Date: 20251021
  Serious: Yes (Death)
  Sender: MYLAN
  Company Number: UA-MYLANLABS-2025M1066969

PATIENT
  Age: 69 Year
  Sex: Female

DRUGS (5)
  1. PRETOMANID [Suspect]
     Active Substance: PRETOMANID
     Indication: Tuberculosis
     Dosage: 0.2 GRAM, QD
     Dates: start: 20250409, end: 20250614
  2. PRETOMANID [Suspect]
     Active Substance: PRETOMANID
     Indication: Disseminated tuberculosis
  3. BEDAQUILINE [Suspect]
     Active Substance: BEDAQUILINE
     Indication: Tuberculosis
     Dosage: 0.2 GRAM, 3XW
     Dates: start: 20250409, end: 20250614
  4. BEDAQUILINE [Suspect]
     Active Substance: BEDAQUILINE
     Indication: Disseminated tuberculosis
  5. LINEZOLID [Concomitant]
     Active Substance: LINEZOLID
     Dosage: 0.6 GRAM, QD
     Dates: start: 20250409, end: 20250614

REACTIONS (1)
  - Death [Fatal]

NARRATIVE: CASE EVENT DATE: 20250620
